FAERS Safety Report 21137525 (Version 1)
Quarter: 2022Q3

REPORT INFORMATION
  Report Type: Spontaneous
  Country: GB (occurrence: GB)
  Receive Date: 20220727
  Receipt Date: 20220727
  Transmission Date: 20221027
  Serious: Yes (Other)
  Sender: FDA-Public Use
  Company Number: GB-MHRA-MED-202207260702300210-ZSDRW

PATIENT
  Age: 29 Year
  Sex: Male
  Weight: 104 kg

DRUGS (2)
  1. MIRTAZAPINE [Suspect]
     Active Substance: MIRTAZAPINE
     Indication: Depression
     Dosage: 15MG ONCE A DAY AT NIGHT - WAS INCREASED TO 30MG BRIEFLY, AND REDUCED DUE TO SIDE EFFECTS; ;
     Dates: start: 20220315
  2. PROPRANOLOL [Concomitant]
     Active Substance: PROPRANOLOL HYDROCHLORIDE
     Indication: Anxiety
     Dosage: UNK
     Dates: start: 20201012

REACTIONS (5)
  - Agitation [Unknown]
  - Abdominal pain [Unknown]
  - Influenza [Unknown]
  - Mania [Unknown]
  - Amnesia [Unknown]
